FAERS Safety Report 7594925-6 (Version None)
Quarter: 2011Q3

REPORT INFORMATION
  Report Type: 
  Country: None (occurrence: None)
  Receive Date: 20110707
  Receipt Date: 20110627
  Transmission Date: 20111222
  Serious: Yes (Hospitalization)
  Sender: FDA-Public Use
  Company Number: US-GENZYME-CLOF-1001580

PATIENT
  Sex: Male
  Weight: 69.4 kg

DRUGS (14)
  1. COLACE [Concomitant]
     Indication: CONSTIPATION
     Dosage: 100 MG, BID
     Route: 048
     Dates: start: 20110420, end: 20110501
  2. NEXIUM [Concomitant]
     Indication: GASTRITIS
     Dosage: 20 MG, QD
     Route: 042
     Dates: start: 20110420, end: 20110505
  3. CYTARABINE [Suspect]
     Indication: ACUTE MYELOID LEUKAEMIA
     Dosage: 36 MG, ONCE
     Route: 037
     Dates: start: 20110419, end: 20110419
  4. BACTRIM [Concomitant]
     Indication: ANTIFUNGAL PROPHYLAXIS
     Dosage: 1 U, BID ON MON, TUES AND WEDS
     Route: 048
     Dates: start: 20110420, end: 20110426
  5. ALLOPURINOL [Concomitant]
     Indication: HYPOURICAEMIA
     Dosage: 300 MG, BID
     Route: 048
     Dates: start: 20110418, end: 20110421
  6. MEROPENEM [Concomitant]
     Indication: PYREXIA
     Dosage: 1380 MG, TID
     Route: 042
     Dates: start: 20110420, end: 20110514
  7. CYTARABINE [Suspect]
     Dosage: 1850 MG, ONCE
     Route: 042
     Dates: start: 20110420, end: 20110420
  8. ACETAMINOPHEN [Concomitant]
     Indication: PYREXIA
     Dosage: 650 MG, Q 4-6 HRS PRN
     Route: 048
     Dates: start: 20110420, end: 20110505
  9. CEFTAZIDIME [Concomitant]
     Indication: PYREXIA
     Dosage: 2 G, TID
     Route: 042
     Dates: start: 20110419, end: 20110421
  10. METHYLPEDNISOLONE SODIUM SUCCINATE [Concomitant]
     Indication: INFLAMMATION
     Dosage: 70 MG, QD
     Route: 042
     Dates: start: 20110420, end: 20110426
  11. METHOTREXATE [Suspect]
     Indication: ACUTE MYELOID LEUKAEMIA
     Dosage: 12 MG, ONCE
     Route: 037
     Dates: start: 20110419, end: 20110419
  12. MIRALAX [Concomitant]
     Indication: CONSTIPATION
     Dosage: 17 G, QD
     Route: 048
     Dates: start: 20110420, end: 20110501
  13. VANCOMYCIN [Concomitant]
     Indication: PRODUCT USED FOR UNKNOWN INDICATION
     Dosage: 1 G, QID
     Route: 042
     Dates: start: 20110420, end: 20110423
  14. CLOFARABINE [Suspect]
     Indication: ACUTE MYELOID LEUKAEMIA
     Dosage: 96 MG, ONCE
     Route: 042
     Dates: start: 20110420, end: 20110420

REACTIONS (3)
  - GLOMERULAR FILTRATION RATE DECREASED [None]
  - RENAL FAILURE [None]
  - BLOOD CREATININE INCREASED [None]
